FAERS Safety Report 15922834 (Version 1)
Quarter: 2019Q1

REPORT INFORMATION
  Report Type: Spontaneous
  Country: US (occurrence: US)
  Receive Date: 20190205
  Receipt Date: 20190205
  Transmission Date: 20190417
  Serious: Yes (Death)
  Sender: FDA-Public Use
  Company Number: None

PATIENT
  Age: 73 Year
  Sex: Female
  Weight: 61.79 kg

DRUGS (10)
  1. EXEMESTANE. [Concomitant]
     Active Substance: EXEMESTANE
  2. CAPECITABINE. [Suspect]
     Active Substance: CAPECITABINE
     Indication: BREAST CANCER
     Route: 048
     Dates: start: 20190111
  3. ASPIRIN. [Concomitant]
     Active Substance: ASPIRIN
  4. PROBIOTICS [Concomitant]
     Active Substance: PROBIOTICS NOS
  5. APAP [Concomitant]
     Active Substance: ACETAMINOPHEN
  6. CAPECITABINE. [Suspect]
     Active Substance: CAPECITABINE
     Indication: BREAST CANCER
     Route: 048
     Dates: start: 20190111
  7. CALCIUM + VITAMIN D [Concomitant]
     Active Substance: CALCIUM\VITAMIN D
  8. MULTIVITAMINS [Concomitant]
     Active Substance: VITAMINS
  9. VITAMIN B12 [Concomitant]
     Active Substance: CYANOCOBALAMIN
  10. IBUPROFEN. [Concomitant]
     Active Substance: IBUPROFEN

REACTIONS (1)
  - Disease progression [None]
